FAERS Safety Report 7805281-X (Version None)
Quarter: 2011Q4

REPORT INFORMATION
  Report Type: 
  Country: None (occurrence: None)
  Receive Date: 20111010
  Receipt Date: 20110926
  Transmission Date: 20120403
  Serious: Yes (Hospitalization)
  Sender: FDA-Public Use
  Company Number: US-BAYER-2011-023545

PATIENT
  Age: 64 Year
  Sex: Male
  Weight: 88.6 kg

DRUGS (48)
  1. NITROGLYCERIN [Concomitant]
     Dosage: 0.4 MG AS NEEDED
     Route: 060
  2. PEPCID [Concomitant]
     Route: 048
  3. FENTANYL [Concomitant]
     Dosage: 25MCG
     Route: 042
  4. COREG [Concomitant]
     Dosage: 1.5625 MG EVERY 12 HOURS
     Route: 048
  5. HEPARIN [Concomitant]
     Dosage: 3000 UNITS ONE DOSE
     Route: 042
  6. NORVASC [Concomitant]
  7. LIPITOR [Concomitant]
     Route: 048
  8. FLOMAX [Concomitant]
  9. CRESTOR [Concomitant]
     Route: 048
  10. LOVENOX [Concomitant]
     Route: 058
  11. PAROXETINE HCL [Concomitant]
  12. ROPINIROLE [Concomitant]
  13. FUROSEMIDE [Concomitant]
  14. INFLUENZA VACCINE [INFLUENZA VACCINE] [Concomitant]
  15. REOPRO [Concomitant]
     Route: 042
  16. LISINOPRIL [Concomitant]
  17. DEXAMETHASONE [Concomitant]
     Route: 030
  18. LIDOCAINE [Concomitant]
  19. NICOTINE [Concomitant]
     Dosage: 21MG/24 HOURS
     Route: 061
  20. REOPRO [Concomitant]
     Route: 042
  21. ACETYLSALICYLIC ACID SRT [Suspect]
     Indication: ACUTE CORONARY SYNDROME
     Dates: end: 20091203
  22. ACETYLSALICYLIC ACID SRT [Interacting]
     Dates: start: 20091203
  23. NITROGLYCERIN [Concomitant]
     Indication: CHEST PAIN
     Dosage: 0.4 MG AS NEEDED
     Route: 060
  24. ACETAMINOPHEN [Concomitant]
     Dosage: EVERY 6 HOURS AS NEEDED
     Route: 048
  25. SPIRONOLACTONE [Concomitant]
  26. BENICAR [Concomitant]
     Dosage: EVERY DAY
  27. CEFTRIAXONE [Concomitant]
     Dosage: 1 GM
     Route: 030
  28. ATIVAN [Concomitant]
     Route: 048
  29. CLOPIDOGREL [Interacting]
     Dates: start: 20091203
  30. FENTANYL [Concomitant]
     Dosage: 25MCG
     Route: 042
  31. HEPARIN [Concomitant]
     Dosage: 3000 UNITS ONE DOSE
     Route: 042
  32. CLOPIDOGREL [Interacting]
     Indication: ACUTE CORONARY SYNDROME
     Dates: end: 20091202
  33. ACETAMINOPHEN [Concomitant]
     Dosage: EVERY 6 HOURS AS NEEDED
     Route: 048
  34. CEFTRIAXONE [Concomitant]
     Dosage: 1 GM
     Route: 030
  35. VERSED [Concomitant]
     Dosage: 1 MG ONE DOSE
     Route: 042
  36. SURFAK [Concomitant]
     Route: 048
  37. RIVAROXABAN [Interacting]
     Indication: ACUTE CORONARY SYNDROME
     Dosage: 2.5 MG, BID
     Route: 048
     Dates: start: 20091203, end: 20110307
  38. DEXAMETHASONE [Concomitant]
     Route: 030
  39. AVELOX [Concomitant]
  40. COREG [Concomitant]
     Dosage: 1.5625 MG EVERY 12 HOURS
     Route: 048
  41. NIACIN [Concomitant]
     Route: 048
  42. FUROSEMIDE [Concomitant]
  43. VERSED [Concomitant]
     Dosage: 1 MG ONE DOSE
     Route: 042
  44. METFORMIN HYDROCHLORIDE [Concomitant]
     Route: 048
  45. TOPROL-XL [Concomitant]
     Route: 048
  46. DETROL LA [Concomitant]
     Route: 048
  47. BICARBONAT [Concomitant]
  48. ZOCOR [Concomitant]
     Route: 048

REACTIONS (1)
  - GASTROINTESTINAL HAEMORRHAGE [None]
